FAERS Safety Report 22355830 (Version 1)
Quarter: 2023Q2

REPORT INFORMATION
  Report Type: Report from Study
  Country: CO (occurrence: CO)
  Receive Date: 20230523
  Receipt Date: 20230523
  Transmission Date: 20230721
  Serious: Yes (Other)
  Sender: FDA-Public Use
  Company Number: CO-ABBVIE-21K-036-3889254-00

PATIENT
  Age: 67 Year
  Sex: Male
  Weight: 70 kg

DRUGS (5)
  1. HUMIRA [Suspect]
     Active Substance: ADALIMUMAB
     Indication: Psoriasis
     Route: 058
     Dates: end: 202101
  2. HUMIRA [Suspect]
     Active Substance: ADALIMUMAB
     Route: 058
     Dates: start: 2021, end: 20210228
  3. HUMIRA [Suspect]
     Active Substance: ADALIMUMAB
     Route: 058
     Dates: end: 20210911
  4. Alekot [Concomitant]
     Indication: Scar
     Dosage: FOR 20 DAYS, REST 10 DAYS AND AGAIN
     Route: 061
  5. SALICYLIC ACID [Concomitant]
     Active Substance: SALICYLIC ACID
     Indication: Scar
     Dosage: FOR 20 DAYS, REST 10 DAYS AND AGAIN
     Route: 061

REACTIONS (21)
  - Metastasis [Not Recovered/Not Resolved]
  - Joint swelling [Not Recovered/Not Resolved]
  - Lymphadenopathy [Not Recovered/Not Resolved]
  - Feeding disorder [Unknown]
  - Inappropriate schedule of product administration [Unknown]
  - Dry skin [Recovering/Resolving]
  - Skin lesion [Recovering/Resolving]
  - Skin plaque [Recovering/Resolving]
  - Prostatic specific antigen increased [Not Recovered/Not Resolved]
  - Prostatic specific antigen abnormal [Not Recovered/Not Resolved]
  - Computerised tomogram abnormal [Not Recovered/Not Resolved]
  - Bone scan abnormal [Not Recovered/Not Resolved]
  - Pruritus [Not Recovered/Not Resolved]
  - Scar [Recovering/Resolving]
  - Hyperhidrosis [Not Recovered/Not Resolved]
  - Palpitations [Not Recovered/Not Resolved]
  - Injury [Unknown]
  - Rash [Recovering/Resolving]
  - Paraesthesia [Not Recovered/Not Resolved]
  - Erythema [Recovering/Resolving]
  - Arthralgia [Not Recovered/Not Resolved]

NARRATIVE: CASE EVENT DATE: 20210101
